FAERS Safety Report 9077758 (Version 1)
Quarter: 2013Q1

REPORT INFORMATION
  Report Type: Report from Study
  Country: US (occurrence: US)
  Receive Date: 20130130
  Receipt Date: 20130130
  Transmission Date: 20140127
  Serious: No
  Sender: FDA-Public Use
  Company Number: US-ABBOTT-12P-163-0976110-00

PATIENT
  Age: 50 None
  Sex: Male
  Weight: 113.5 kg

DRUGS (1)
  1. HUMIRA [Suspect]
     Dates: start: 201202

REACTIONS (3)
  - Psoriasis [Unknown]
  - Device malfunction [Not Recovered/Not Resolved]
  - Drug dose omission [Unknown]
